FAERS Safety Report 20495382 (Version 2)
Quarter: 2022Q1

REPORT INFORMATION
  Report Type: Spontaneous
  Country: US (occurrence: US)
  Receive Date: 20220221
  Receipt Date: 20220330
  Transmission Date: 20220423
  Serious: Yes (Other)
  Sender: FDA-Public Use
  Company Number: US-PFIZER INC-2020213017

PATIENT
  Age: 65 Year
  Sex: Male

DRUGS (3)
  1. RETACRIT [Suspect]
     Active Substance: EPOETIN ALFA-EPBX
     Indication: Congenital dyserythropoietic anaemia
     Dosage: UNK (40,000 (UNITS/1 ML)
  2. RETACRIT [Suspect]
     Active Substance: EPOETIN ALFA-EPBX
     Indication: Acute kidney injury
     Dosage: UNK, (40,000 UNITS)
  3. RETACRIT [Suspect]
     Active Substance: EPOETIN ALFA-EPBX
     Indication: Nephrogenic anaemia
     Dosage: UNK (40000 UN/ML)

REACTIONS (2)
  - Suicidal behaviour [Unknown]
  - Off label use [Unknown]
